FAERS Safety Report 24457875 (Version 1)
Quarter: 2024Q4

REPORT INFORMATION
  Report Type: Report from Study
  Country: US (occurrence: US)
  Receive Date: 20241018
  Receipt Date: 20241018
  Transmission Date: 20250115
  Serious: No
  Sender: ROCHE
  Company Number: US-ROCHE-3431864

PATIENT
  Age: 36 Year
  Sex: Male

DRUGS (1)
  1. CATHFLO ACTIVASE [Suspect]
     Active Substance: ALTEPLASE
     Indication: Infectious pleural effusion
     Dosage: DOS: 21-JUN-2023, 22/JUN/2023, 23/JUN/2023, 28/JUN/2023, 29/JUN/2023, 30/JUN/2023, 05/JUL/2023, 6/JU
     Route: 065

REACTIONS (2)
  - Off label use [Unknown]
  - No adverse event [Unknown]
